FAERS Safety Report 7236535-6 (Version None)
Quarter: 2011Q1

REPORT INFORMATION
  Report Type: 
  Country: None (occurrence: None)
  Receive Date: 20110112
  Receipt Date: 20101228
  Transmission Date: 20110831
  Serious: Yes (Death)
  Sender: FDA-Public Use
  Company Number: 2011000005

PATIENT
  Age: 71 Year
  Sex: Female

DRUGS (18)
  1. MESITAT [Concomitant]
  2. AMARYL [Concomitant]
  3. PROCATEROL HCL [Concomitant]
  4. KETOPROFEN [Concomitant]
  5. ERLOTINIB (ERLOTINIB) (TABLET) (ERLOTINIB) [Suspect]
     Indication: LUNG SQUAMOUS CELL CARCINOMA STAGE UNSPECIFIED
     Dosage: (75 MG, 1 IN 3 D) ,ORAL
     Route: 048
     Dates: start: 20090708, end: 20100714
  6. PRAVASTATIN [Concomitant]
  7. BASEN (VOGLIBOSE) [Concomitant]
  8. SULPIRIDE (SULPIRIDE) [Concomitant]
  9. MUCOSOLATE (AMBROXOL HYDROCHLORIDE) [Concomitant]
  10. MEILAX (ETHYL LOFLAZEPATE) [Concomitant]
  11. NAIXAN (NAPROXEN SODIUM) [Concomitant]
  12. BROCIN (WILD CHERRY BARK) [Concomitant]
  13. MINOCYCLINE HYDROCHLORIDE [Suspect]
     Dosage: (200 MG,QD), ORAL
     Route: 048
     Dates: start: 20091202, end: 20100512
  14. RABEPRAZOLE SODIUM [Concomitant]
  15. ISOSORBIDE DINITRATE [Concomitant]
  16. HUSTAZOL (CLOPERASTINE HYDROCHLORIDE) [Concomitant]
  17. LOXONIN (LOXOPROFEN SODIUM) [Concomitant]
  18. VOLTAREN [Concomitant]

REACTIONS (4)
  - RASH [None]
  - DIARRHOEA [None]
  - DECREASED APPETITE [None]
  - DIZZINESS [None]
